FAERS Safety Report 6945772-7 (Version None)
Quarter: 2010Q3

REPORT INFORMATION
  Report Type: 
  Country: None (occurrence: None)
  Receive Date: 20100827
  Receipt Date: 20100819
  Transmission Date: 20110219
  Serious: Yes (Hospitalization)
  Sender: FDA-Public Use
  Company Number: B0668934A

PATIENT
  Sex: Female
  Weight: 100 kg

DRUGS (5)
  1. PAZOPANIB [Suspect]
     Indication: RENAL CANCER METASTATIC
     Dosage: 400MG PER DAY
     Route: 048
     Dates: start: 20100715
  2. BEVACIZUMAB [Suspect]
     Indication: RENAL CANCER METASTATIC
     Dosage: 10MGK EVERY TWO WEEKS
     Route: 042
     Dates: start: 20100729
  3. BROMAZEPAM [Concomitant]
     Indication: ANXIETY
     Route: 048
     Dates: start: 20020101
  4. CYAMEMAZINE [Concomitant]
     Indication: ANXIETY
     Dosage: 25MG PER DAY
     Dates: start: 20070101
  5. HYDROMORPHONE [Concomitant]
     Indication: BONE PAIN
     Dates: start: 20100601

REACTIONS (3)
  - ABDOMINAL PAIN [None]
  - CHEST PAIN [None]
  - MUSCULOSKELETAL CHEST PAIN [None]
